FAERS Safety Report 25601701 (Version 1)
Quarter: 2025Q3

REPORT INFORMATION
  Report Type: Spontaneous
  Country: TW (occurrence: TW)
  Receive Date: 20250724
  Receipt Date: 20250724
  Transmission Date: 20251021
  Serious: Yes (Hospitalization, Other)
  Sender: PFIZER
  Company Number: TW-PFIZER INC-PV202500089015

PATIENT
  Age: 62 Year
  Sex: Male
  Weight: 68.4 kg

DRUGS (14)
  1. TYGACIL [Suspect]
     Active Substance: TIGECYCLINE
     Indication: Infection
     Dates: start: 20250218, end: 20250303
  2. TYGACIL [Suspect]
     Active Substance: TIGECYCLINE
     Indication: Evidence based treatment
     Dosage: 1 DF, 2X/DAY
     Route: 041
     Dates: start: 20250512, end: 20250516
  3. AVIBACTAM SODIUM\CEFTAZIDIME [Concomitant]
     Active Substance: AVIBACTAM SODIUM\CEFTAZIDIME
     Indication: Evidence based treatment
  4. POLYMYXIN B [Concomitant]
     Active Substance: POLYMYXIN B
     Indication: Evidence based treatment
  5. ANIDULAFUNGIN [Concomitant]
     Active Substance: ANIDULAFUNGIN
     Indication: Evidence based treatment
  6. MINOCYCLINE [Concomitant]
     Active Substance: MINOCYCLINE HYDROCHLORIDE
  7. COTRIMOXAZOLE [Concomitant]
     Active Substance: SULFAMETHOXAZOLE\TRIMETHOPRIM
  8. METRONIDAZOLE [Concomitant]
     Active Substance: METRONIDAZOLE
  9. FUROSEMIDE [Concomitant]
     Active Substance: FUROSEMIDE
  10. METHYLPREDNISOLONE [Concomitant]
     Active Substance: METHYLPREDNISOLONE
  11. CORTISONE [Concomitant]
     Active Substance: CORTISONE
  12. LEVOFLOXACIN [Concomitant]
     Active Substance: LEVOFLOXACIN
  13. GANCICLOVIR [Concomitant]
     Active Substance: GANCICLOVIR
  14. DAPAGLIFLOZIN [Concomitant]
     Active Substance: DAPAGLIFLOZIN

REACTIONS (12)
  - Pancreatitis [Recovering/Resolving]
  - Pneumonia [Unknown]
  - Acute respiratory distress syndrome [Unknown]
  - Large intestine perforation [Unknown]
  - Abscess [Unknown]
  - Altered state of consciousness [Unknown]
  - Metabolic acidosis [Unknown]
  - Respiratory acidosis [Unknown]
  - Abdominal pain [Unknown]
  - Vomiting [Unknown]
  - Dyspnoea [Unknown]
  - Oxygen saturation decreased [Unknown]

NARRATIVE: CASE EVENT DATE: 20250101
